FAERS Safety Report 11700103 (Version 1)
Quarter: 2015Q4

REPORT INFORMATION
  Report Type: Spontaneous
  Country: US (occurrence: None)
  Receive Date: 20151104
  Receipt Date: 20151104
  Transmission Date: 20160304
  Serious: Yes (Other)
  Sender: FDA-Public Use
  Company Number: None

PATIENT
  Age: 53 Year
  Sex: Female
  Weight: 108.86 kg

DRUGS (5)
  1. METFORMIN [Suspect]
     Active Substance: METFORMIN HYDROCHLORIDE
     Indication: BLOOD GLUCOSE ABNORMAL
     Dosage: 2 PILL BEFORE EATING
     Route: 048
     Dates: start: 20151030, end: 20151101
  2. IBUPROFEN. [Concomitant]
     Active Substance: IBUPROFEN
  3. D SUPPLEMENT [Concomitant]
  4. B SUPPLEMENT [Concomitant]
  5. NITRIC OXIDE STIMULATOR [Concomitant]

REACTIONS (5)
  - Muscle contracture [None]
  - Paraesthesia [None]
  - Back pain [None]
  - Blood glucose increased [None]
  - Abasia [None]

NARRATIVE: CASE EVENT DATE: 20151030
